FAERS Safety Report 8398518-2 (Version None)
Quarter: 2012Q2

REPORT INFORMATION
  Report Type: 
  Country: None (occurrence: None)
  Receive Date: 20120531
  Receipt Date: 20120524
  Transmission Date: 20120825
  Serious: Yes (Hospitalization)
  Sender: FDA-Public Use
  Company Number: US-B.I. PHARMACEUTICALS,INC./RIDGEFIELD-2012-BP-05559BP

PATIENT
  Sex: Female
  Weight: 47.63 kg

DRUGS (10)
  1. HYDROCHLOROTHIAZIDE [Concomitant]
  2. NORCO [Concomitant]
  3. PRADAXA [Suspect]
     Indication: ATRIAL FIBRILLATION
     Dosage: 300 MG
     Route: 048
     Dates: start: 20120120, end: 20120315
  4. DIGOXIN [Concomitant]
  5. IMDUR [Concomitant]
     Dosage: 30 MG
  6. LEVOTHYROXINE SODIUM [Concomitant]
     Dosage: 88 MCG
  7. TOPROL-XL [Concomitant]
     Dosage: 100 MG
  8. LIPITOR [Concomitant]
     Dosage: 40 MG
  9. LOTREL [Concomitant]
  10. FLEXERIL [Concomitant]

REACTIONS (1)
  - GASTROINTESTINAL HAEMORRHAGE [None]
